FAERS Safety Report 24278241 (Version 1)
Quarter: 2024Q3

REPORT INFORMATION
  Report Type: Spontaneous
  Country: US (occurrence: None)
  Receive Date: 20240830
  Receipt Date: 20240830
  Transmission Date: 20241017
  Serious: Yes (Hospitalization)
  Sender: Public
  Company Number: None

PATIENT
  Age: 66 Year
  Sex: Female

DRUGS (1)
  1. TACROLIMUS [Suspect]
     Active Substance: TACROLIMUS
     Dosage: OTHER QUANTITY : 5 CAPSULES;?FREQUENCY : EVERY 12 HOURS;?
     Route: 048
     Dates: start: 20240706

REACTIONS (3)
  - Infection [None]
  - Complications of transplanted liver [None]
  - Fall [None]

NARRATIVE: CASE EVENT DATE: 20240710
